FAERS Safety Report 5153694-X (Version None)
Quarter: 2006Q4

REPORT INFORMATION
  Report Type: 
  Country: None (occurrence: None)
  Receive Date: 20061114
  Receipt Date: 20061023
  Transmission Date: 20070319
  Serious: Yes (Other)
  Sender: FDA-Public Use
  Company Number: 2006-07-0271

PATIENT
  Sex: Female

DRUGS (2)
  1. TEMOZOLOMIDE                         (TEMOZOLOMIDE) [Suspect]
     Indication: GLIOBLASTOMA MULTIFORME
     Dosage: 400 MG; PO; SEE IMAGE
     Route: 048
     Dates: start: 20060323, end: 20060508
  2. TEMOZOLOMIDE                         (TEMOZOLOMIDE) [Suspect]
     Indication: GLIOBLASTOMA MULTIFORME
     Dosage: 400 MG; PO; SEE IMAGE
     Route: 048
     Dates: start: 20060619

REACTIONS (3)
  - ANAPHYLACTOID REACTION [None]
  - DERMATITIS BULLOUS [None]
  - SUNBURN [None]
